FAERS Safety Report 16272317 (Version 4)
Quarter: 2019Q4

REPORT INFORMATION
  Report Type: Report from Study
  Country: US (occurrence: US)
  Receive Date: 20190503
  Receipt Date: 20191211
  Transmission Date: 20200122
  Serious: Yes (Death, Hospitalization, Other)
  Sender: FDA-Public Use
  Company Number: US-ACTELION-A-US2019-189974

PATIENT
  Age: 69 Year
  Sex: Male
  Weight: 82.54 kg

DRUGS (2)
  1. OPSUMIT [Suspect]
     Active Substance: MACITENTAN
     Indication: PULMONARY ARTERIAL HYPERTENSION
     Dosage: 10 MG, QD
     Route: 048
     Dates: start: 20180517, end: 20190625
  2. SILDENAFIL CITRATE. [Concomitant]
     Active Substance: SILDENAFIL CITRATE

REACTIONS (11)
  - Renal cyst [Unknown]
  - Dialysis [Unknown]
  - Hepatic failure [Unknown]
  - Hypotension [Unknown]
  - Pericardial effusion [Unknown]
  - Lower limb fracture [Recovered/Resolved with Sequelae]
  - Cerebrovascular accident [Unknown]
  - Renal failure [Recovered/Resolved with Sequelae]
  - Thrombosis [Unknown]
  - End stage renal disease [Fatal]
  - Hepatic cyst [Unknown]

NARRATIVE: CASE EVENT DATE: 201905
